FAERS Safety Report 24219136 (Version 1)
Quarter: 2024Q3

REPORT INFORMATION
  Report Type: Spontaneous
  Country: FR (occurrence: FR)
  Receive Date: 20240816
  Receipt Date: 20240816
  Transmission Date: 20241016
  Serious: Yes (Hospitalization)
  Sender: FRESENIUS KABI
  Company Number: None

PATIENT
  Age: 69 Year
  Sex: Female
  Weight: 87 kg

DRUGS (22)
  1. ONDANSETRON [Suspect]
     Active Substance: ONDANSETRON
     Indication: Prophylaxis of nausea and vomiting
     Route: 042
     Dates: start: 20240524, end: 20240527
  2. ONDANSETRON [Suspect]
     Active Substance: ONDANSETRON
     Route: 042
     Dates: start: 20240503, end: 20240505
  3. DEXAMETHASONE [Suspect]
     Active Substance: DEXAMETHASONE
     Indication: Hodgkin^s disease
     Route: 048
     Dates: start: 20240503, end: 20240507
  4. DEXAMETHASONE [Suspect]
     Active Substance: DEXAMETHASONE
     Route: 048
     Dates: start: 20240524, end: 20240528
  5. ADCETRIS [Suspect]
     Active Substance: BRENTUXIMAB VEDOTIN
     Indication: Hodgkin^s disease
     Route: 042
     Dates: start: 20240524, end: 20240524
  6. ADCETRIS [Suspect]
     Active Substance: BRENTUXIMAB VEDOTIN
     Route: 042
     Dates: start: 20240503, end: 20240503
  7. GUAIFENESIN [Suspect]
     Active Substance: GUAIFENESIN
     Indication: Premedication
     Route: 042
     Dates: start: 20240503, end: 20240503
  8. DEXCHLORPHENIRAMINE MALEATE [Suspect]
     Active Substance: DEXCHLORPHENIRAMINE MALEATE
     Route: 042
     Dates: start: 20240524, end: 20240524
  9. DACARBAZINE [Suspect]
     Active Substance: DACARBAZINE
     Indication: Hodgkin^s disease
     Route: 042
     Dates: start: 20240504, end: 20240505
  10. DACARBAZINE [Suspect]
     Active Substance: DACARBAZINE
     Route: 042
     Dates: start: 20240525, end: 20240526
  11. APREPITANT [Suspect]
     Active Substance: APREPITANT
     Indication: Prophylaxis of nausea and vomiting
     Route: 048
     Dates: start: 20240503, end: 20240503
  12. APREPITANT [Suspect]
     Active Substance: APREPITANT
     Route: 048
     Dates: start: 20240504, end: 20240505
  13. APREPITANT [Suspect]
     Active Substance: APREPITANT
     Route: 048
     Dates: start: 20240524, end: 20240524
  14. APREPITANT [Suspect]
     Active Substance: APREPITANT
     Route: 048
     Dates: start: 20240525, end: 20240526
  15. DOXORUBICIN [Suspect]
     Active Substance: DOXORUBICIN
     Indication: Hodgkin^s disease
     Route: 042
     Dates: start: 20240524, end: 20240524
  16. DOXORUBICIN [Suspect]
     Active Substance: DOXORUBICIN
     Route: 042
     Dates: start: 20240503, end: 20240503
  17. MESNA [Suspect]
     Active Substance: MESNA
     Indication: Prophylaxis
     Route: 042
     Dates: start: 20240503, end: 20240503
  18. MESNA [Suspect]
     Active Substance: MESNA
     Route: 042
     Dates: start: 20240524, end: 20240524
  19. ETOPOSIDE [Suspect]
     Active Substance: ETOPOSIDE
     Indication: Hodgkin^s disease
     Route: 042
     Dates: start: 20240503, end: 20240505
  20. ETOPOSIDE [Suspect]
     Active Substance: ETOPOSIDE
     Route: 042
     Dates: start: 20240524, end: 20240526
  21. CYCLOPHOSPHAMIDE [Suspect]
     Active Substance: CYCLOPHOSPHAMIDE
     Indication: Hodgkin^s disease
     Route: 042
     Dates: start: 20240524, end: 20240524
  22. CYCLOPHOSPHAMIDE [Suspect]
     Active Substance: CYCLOPHOSPHAMIDE
     Route: 042
     Dates: start: 20240503, end: 20240503

REACTIONS (2)
  - Meningitis aseptic [Recovering/Resolving]
  - Acute polyneuropathy [Recovering/Resolving]

NARRATIVE: CASE EVENT DATE: 20240618
